FAERS Safety Report 17359167 (Version 1)
Quarter: 2020Q1

REPORT INFORMATION
  Report Type: Spontaneous
  Country: HR (occurrence: HR)
  Receive Date: 20200203
  Receipt Date: 20200203
  Transmission Date: 20200409
  Serious: Yes (Other)
  Sender: FDA-Public Use
  Company Number: HR-TEVA-2020-HR-1177825

PATIENT
  Age: 23 Year
  Sex: Female

DRUGS (4)
  1. AZOLAR [Suspect]
     Active Substance: ARIPIPRAZOLE
     Route: 048
     Dates: start: 20190912, end: 20190912
  2. AKINETON [Suspect]
     Active Substance: BIPERIDEN HYDROCHLORIDE
     Dosage: 100 MG
     Route: 048
     Dates: start: 20190912, end: 20190912
  3. FEVARIN [Suspect]
     Active Substance: FLUVOXAMINE MALEATE
     Route: 048
     Dates: start: 20190912, end: 20190912
  4. RISSET [Suspect]
     Active Substance: RISPERIDONE
     Route: 048
     Dates: start: 20190912, end: 20190912

REACTIONS (3)
  - Vomiting [Unknown]
  - Somnolence [Unknown]
  - Suicide attempt [Unknown]

NARRATIVE: CASE EVENT DATE: 20190912
